FAERS Safety Report 12322752 (Version 2)
Quarter: 2019Q1

REPORT INFORMATION
  Report Type: Spontaneous
  Country: US (occurrence: US)
  Receive Date: 20160502
  Receipt Date: 20190314
  Transmission Date: 20190417
  Serious: No
  Sender: FDA-Public Use
  Company Number: US-PFIZER INC-2016234267

PATIENT
  Age: 62 Year
  Sex: Male
  Weight: 118.4 kg

DRUGS (3)
  1. ZITHROMAX [Suspect]
     Active Substance: AZITHROMYCIN DIHYDRATE
     Dosage: UNK
  2. TEGRETOL [Suspect]
     Active Substance: CARBAMAZEPINE
     Dosage: UNK
  3. PRIMIDONE. [Suspect]
     Active Substance: PRIMIDONE
     Dosage: UNK

REACTIONS (2)
  - Skin burning sensation [Unknown]
  - Drug hypersensitivity [Unknown]
